FAERS Safety Report 8358096-0 (Version None)
Quarter: 2012Q2

REPORT INFORMATION
  Report Type: 
  Country: None (occurrence: None)
  Receive Date: 20120514
  Receipt Date: 20120502
  Transmission Date: 20120825
  Serious: Yes (Other)
  Sender: FDA-Public Use
  Company Number: US-ROCHE-1021943

PATIENT
  Sex: Male
  Weight: 75.818 kg

DRUGS (6)
  1. ZELBORAF [Suspect]
     Indication: MALIGNANT MELANOMA
     Route: 048
     Dates: start: 20111210
  2. ZOCOR [Concomitant]
     Dosage: UNKNOWN
     Route: 048
  3. MOBIC [Concomitant]
     Indication: ARTHRALGIA
     Dates: start: 20111223
  4. ZOFRAN [Concomitant]
     Dosage: UNKNOWN
  5. REGLAN [Concomitant]
     Dosage: UNKNOWN
  6. INTRON [Suspect]
     Indication: MALIGNANT MELANOMA
     Route: 058
     Dates: start: 20110923, end: 20111121

REACTIONS (7)
  - MYALGIA [None]
  - ERYTHEMA [None]
  - HEPATIC MASS [None]
  - RASH PAPULAR [None]
  - PULMONARY MASS [None]
  - ARTHRALGIA [None]
  - PRURITUS [None]
